FAERS Safety Report 7815342-7 (Version None)
Quarter: 2011Q4

REPORT INFORMATION
  Report Type: 
  Country: None (occurrence: None)
  Receive Date: 20111014
  Receipt Date: 20111005
  Transmission Date: 20120403
  Serious: Yes (Hospitalization, Other)
  Sender: FDA-Public Use
  Company Number: US-MERCK-1108USA01356

PATIENT
  Age: 71 Year
  Sex: Female

DRUGS (1)
  1. FOSAMAX [Suspect]
     Indication: OSTEOPOROSIS
     Route: 048
     Dates: start: 19950101, end: 20010101

REACTIONS (9)
  - THYROID DISORDER [None]
  - OSTEOMYELITIS [None]
  - GALLBLADDER DISORDER [None]
  - DEVICE FAILURE [None]
  - OSTEONECROSIS OF JAW [None]
  - ABSCESS [None]
  - IMPAIRED HEALING [None]
  - ARTHROPATHY [None]
  - GINGIVAL DISORDER [None]
